FAERS Safety Report 4265046-5 (Version None)
Quarter: 2004Q1

REPORT INFORMATION
  Report Type: 
  Country: None (occurrence: None)
  Receive Date: 20040105
  Receipt Date: 20031231
  Transmission Date: 20041129
  Serious: Yes (Hospitalization, Other)
  Sender: FDA-Public Use
  Company Number: 2003-12-1713

PATIENT
  Age: 50 Year
  Sex: Male
  Weight: 75 kg

DRUGS (6)
  1. REBETOL [Suspect]
     Indication: HEPATITIS C
     Dosage: 900 MG QD ORAL
     Route: 048
     Dates: start: 20030912, end: 20031212
  2. INTRON A [Suspect]
     Indication: HEPATITIS C
     Dosage: 3 MU QD SC; 6 MU QOD SC; 3 MU QOD SC; 3 MU QOD SC
     Route: 058
     Dates: start: 20030912, end: 20031011
  3. INTRON A [Suspect]
     Indication: HEPATITIS C
     Dosage: 3 MU QD SC; 6 MU QOD SC; 3 MU QOD SC; 3 MU QOD SC
     Route: 058
     Dates: start: 20031012, end: 20031112
  4. INTRON A [Suspect]
     Indication: HEPATITIS C
     Dosage: 3 MU QD SC; 6 MU QOD SC; 3 MU QOD SC; 3 MU QOD SC
     Route: 058
     Dates: start: 20031112, end: 20031119
  5. INTRON A [Suspect]
     Indication: HEPATITIS C
     Dosage: 3 MU QD SC; 6 MU QOD SC; 3 MU QOD SC; 3 MU QOD SC
     Route: 058
     Dates: start: 20030912, end: 20031212
  6. INTRON A [Suspect]
     Indication: HEPATITIS C
     Dosage: 3 MU QD SC; 6 MU QOD SC; 3 MU QOD SC; 3 MU QOD SC
     Route: 058
     Dates: start: 20031205, end: 20031212

REACTIONS (2)
  - FATIGUE [None]
  - SUPRAVENTRICULAR EXTRASYSTOLES [None]
